FAERS Safety Report 8351205-9 (Version None)
Quarter: 2012Q2

REPORT INFORMATION
  Report Type: 
  Country: None (occurrence: None)
  Receive Date: 20120510
  Receipt Date: 20120503
  Transmission Date: 20120825
  Serious: Yes (Hospitalization)
  Sender: FDA-Public Use
  Company Number: NL-MEDIMMUNE-MEDI-0014905

PATIENT
  Sex: Male
  Weight: 3.77 kg

DRUGS (2)
  1. SYNAGIS [Suspect]
     Route: 030
     Dates: start: 20120208, end: 20120208
  2. SYNAGIS [Suspect]
     Indication: HEART DISEASE CONGENITAL
     Route: 030
     Dates: start: 20120113, end: 20120113

REACTIONS (3)
  - NASOPHARYNGITIS [None]
  - BRONCHIAL SECRETION RETENTION [None]
  - DYSPNOEA [None]
